FAERS Safety Report 21538279 (Version 1)
Quarter: 2022Q4

REPORT INFORMATION
  Report Type: Other
  Country: US (occurrence: US)
  Receive Date: 20221102
  Receipt Date: 20221102
  Transmission Date: 20230112
  Serious: Yes (Other)
  Sender: FDA-Public Use
  Company Number: US-DECIPHERA PHARMACEUTICALS LLC-2022US000870

PATIENT
  Sex: Female

DRUGS (2)
  1. QINLOCK [Suspect]
     Active Substance: RIPRETINIB
     Indication: Gastrointestinal stromal tumour
     Dosage: 150 MILLIGRAM, QD
     Route: 048
     Dates: start: 20201001
  2. MORPHINE [Suspect]
     Active Substance: MORPHINE
     Indication: Pain
     Dosage: UNK

REACTIONS (8)
  - Hallucination [Unknown]
  - Haemoglobin decreased [Unknown]
  - Tongue discomfort [Unknown]
  - Fluid retention [Unknown]
  - Pain [Unknown]
  - Myalgia [Unknown]
  - Hypertension [Unknown]
  - Stomatitis [Unknown]
